FAERS Safety Report 7406293-0 (Version None)
Quarter: 2011Q2

REPORT INFORMATION
  Report Type: 
  Country: None (occurrence: None)
  Receive Date: 20110411
  Receipt Date: 20110405
  Transmission Date: 20111010
  Serious: Yes (Hospitalization, Other)
  Sender: FDA-Public Use
  Company Number: BR-ABBOTT-10P-020-0685947-00

PATIENT
  Sex: Female
  Weight: 52 kg

DRUGS (23)
  1. HUMIRA [Suspect]
     Indication: RHEUMATOID ARTHRITIS
     Dosage: 80 MG LOADING DOSE
     Route: 058
     Dates: start: 20080101, end: 20100101
  2. HUMIRA [Suspect]
     Route: 058
  3. CARVEDILOL [Concomitant]
     Indication: CARDIAC DISORDER
  4. SIMVASTATIN [Concomitant]
     Indication: BLOOD CHOLESTEROL
  5. INSULIN [Concomitant]
     Indication: DIABETES MELLITUS
  6. ANCORON [Concomitant]
     Indication: PRODUCT USED FOR UNKNOWN INDICATION
  7. LEXOTAN [Concomitant]
     Indication: SLEEP DISORDER THERAPY
  8. RETIMIU [Concomitant]
     Indication: PRODUCT USED FOR UNKNOWN INDICATION
     Route: 048
  9. PANTOCAL [Concomitant]
     Indication: PANCREATIC DISORDER
  10. ZOCOR [Concomitant]
     Indication: BLOOD CHOLESTEROL ABNORMAL
  11. PANTOPRAZOLE [Concomitant]
     Indication: GASTRIC DISORDER
     Route: 048
  12. ANCORON [Concomitant]
     Indication: CARDIAC DISORDER
  13. CALCORT [Concomitant]
     Indication: RHEUMATOID ARTHRITIS
  14. LEVOID [Concomitant]
     Indication: HYPOTHYROIDISM
     Route: 048
     Dates: start: 20101201
  15. PANTOPRAZOLE [Concomitant]
     Indication: PROPHYLAXIS
  16. PLAVIX [Concomitant]
     Indication: CARDIOVASCULAR DISORDER
     Route: 048
  17. CARVEDILOL [Concomitant]
     Route: 048
  18. CEDUR [Concomitant]
     Indication: PRODUCT USED FOR UNKNOWN INDICATION
  19. APRESOLINA [Concomitant]
     Indication: CARDIAC DISORDER
  20. SIMVASTATIN [Concomitant]
     Indication: BLOOD TRIGLYCERIDES
     Route: 048
  21. MONOCORDIL [Concomitant]
     Indication: CARDIAC DISORDER
  22. BEZAFIBRATE [Concomitant]
     Indication: CARDIOVASCULAR DISORDER
     Route: 048
  23. LEXOTAN [Concomitant]
     Route: 048

REACTIONS (8)
  - VOMITING [None]
  - PANCREATITIS ACUTE [None]
  - CARDIAC DISORDER [None]
  - VASCULAR BYPASS DYSFUNCTION [None]
  - CHOLELITHIASIS [None]
  - ARTHRALGIA [None]
  - INSOMNIA [None]
  - CATARACT [None]
